FAERS Safety Report 15256720 (Version 4)
Quarter: 2019Q4

REPORT INFORMATION
  Report Type: Report from Study
  Country: DO (occurrence: DO)
  Receive Date: 20180808
  Receipt Date: 20191112
  Transmission Date: 20200122
  Serious: Yes (Disabling, Other)
  Sender: FDA-Public Use
  Company Number: PHHY2017DO060974

PATIENT
  Age: 62 Year
  Sex: Female

DRUGS (3)
  1. SERTRALINE [Concomitant]
     Active Substance: SERTRALINE HYDROCHLORIDE
     Indication: DEPRESSION
     Dosage: 50 MG, UNK
     Route: 065
  2. GILENYA [Suspect]
     Active Substance: FINGOLIMOD HYDROCHLORIDE
     Indication: RELAPSING-REMITTING MULTIPLE SCLEROSIS
     Dosage: 0.5 MG, QD
     Route: 048
     Dates: start: 201703
  3. GILENYA [Suspect]
     Active Substance: FINGOLIMOD HYDROCHLORIDE
     Dosage: 0.5 MG, UNK
     Route: 065
     Dates: start: 20180330

REACTIONS (12)
  - Gait disturbance [Not Recovered/Not Resolved]
  - Vitreous detachment [Recovering/Resolving]
  - Lymphocyte count decreased [Recovering/Resolving]
  - Transaminases increased [Recovering/Resolving]
  - White blood cell count decreased [Recovering/Resolving]
  - Liver disorder [Unknown]
  - Pyrexia [Unknown]
  - Limb discomfort [Unknown]
  - Muscle spasticity [Recovering/Resolving]
  - Muscle rigidity [Recovering/Resolving]
  - Asthenia [Recovering/Resolving]
  - Influenza [Unknown]

NARRATIVE: CASE EVENT DATE: 201805
